FAERS Safety Report 9956109 (Version 1)
Quarter: 2014Q1

REPORT INFORMATION
  Report Type: Report from Study
  Country: US (occurrence: US)
  Receive Date: 20140304
  Receipt Date: 20140304
  Transmission Date: 20141002
  Serious: No
  Sender: FDA-Public Use
  Company Number: US-ABBVIE-13P-163-1090295-00

PATIENT
  Age: 56 Year
  Sex: Male

DRUGS (3)
  1. HUMIRA [Suspect]
     Indication: COLITIS ULCERATIVE
     Dosage: DAY 1
     Dates: start: 20130511, end: 20130511
  2. HUMIRA [Suspect]
     Dosage: DAY 2
     Dates: start: 20130512
  3. HUMIRA [Suspect]
     Route: 058

REACTIONS (1)
  - Injection site pain [Recovered/Resolved]
